FAERS Safety Report 5443958-4 (Version None)
Quarter: 2007Q3

REPORT INFORMATION
  Report Type: 
  Country: None (occurrence: None)
  Receive Date: 20070905
  Receipt Date: 20070824
  Transmission Date: 20080115
  Serious: Yes (Other)
  Sender: FDA-Public Use
  Company Number: US-PFIZER INC-2007073073

PATIENT
  Age: 5 Year
  Sex: Female

DRUGS (1)
  1. SILDENAFIL (PAH) [Suspect]
     Indication: PULMONARY HYPERTENSION
     Route: 048

REACTIONS (3)
  - COUGH [None]
  - DYSPNOEA [None]
  - HYPERSENSITIVITY [None]
